FAERS Safety Report 15938260 (Version 1)
Quarter: 2019Q1

REPORT INFORMATION
  Report Type: Spontaneous
  Country: US (occurrence: US)
  Receive Date: 20190208
  Receipt Date: 20190208
  Transmission Date: 20190417
  Serious: No
  Sender: FDA-Public Use
  Company Number: US-ROCHE-2200840

PATIENT
  Sex: Female
  Weight: 61.29 kg

DRUGS (4)
  1. PREDNISOLONE. [Concomitant]
     Active Substance: PREDNISOLONE
  2. XOLAIR [Suspect]
     Active Substance: OMALIZUMAB
     Dosage: 2ND SHOT, INFUSION
     Route: 058
     Dates: start: 20181008
  3. XOLAIR [Suspect]
     Active Substance: OMALIZUMAB
     Indication: PRODUCT USED FOR UNKNOWN INDICATION
     Dosage: INFUSION
     Route: 058
     Dates: start: 20180924
  4. METOPROLOL. [Concomitant]
     Active Substance: METOPROLOL

REACTIONS (3)
  - Reflux gastritis [Unknown]
  - Hypersensitivity [Not Recovered/Not Resolved]
  - Cough [Unknown]
